FAERS Safety Report 7121186-4 (Version None)
Quarter: 2010Q4

REPORT INFORMATION
  Report Type: 
  Country: None (occurrence: None)
  Receive Date: 20101124
  Receipt Date: 20101111
  Transmission Date: 20110411
  Serious: Yes (Hospitalization, Other)
  Sender: FDA-Public Use
  Company Number: PHEH2007US03752

PATIENT
  Sex: Male

DRUGS (1)
  1. ZOMETA [Suspect]
     Dosage: EVERY 6 WEEKS
     Dates: start: 20040901, end: 20060701

REACTIONS (19)
  - AEROPHAGIA [None]
  - ANXIETY [None]
  - BACK PAIN [None]
  - BONE DISORDER [None]
  - BONE LESION [None]
  - COLONIC OBSTRUCTION [None]
  - DECREASED INTEREST [None]
  - FACET JOINT SYNDROME [None]
  - GENERAL PHYSICAL HEALTH DETERIORATION [None]
  - HYPOAESTHESIA [None]
  - INTERVERTEBRAL DISC PROTRUSION [None]
  - METASTASES TO BONE [None]
  - OSTEONECROSIS OF JAW [None]
  - PAIN [None]
  - PAIN IN JAW [None]
  - RADICULOPATHY [None]
  - SPINAL COLUMN STENOSIS [None]
  - SPINAL DISORDER [None]
  - URINARY RETENTION [None]
